FAERS Safety Report 16388449 (Version 2)
Quarter: 2019Q3

REPORT INFORMATION
  Report Type: Spontaneous
  Country: US (occurrence: US)
  Receive Date: 20190604
  Receipt Date: 20190705
  Transmission Date: 20191004
  Serious: No
  Sender: FDA-Public Use
  Company Number: US-PFIZER INC-2019232455

PATIENT
  Age: 79 Year
  Sex: Female
  Weight: 72 kg

DRUGS (1)
  1. IBRANCE [Suspect]
     Active Substance: PALBOCICLIB
     Indication: BREAST CANCER METASTATIC
     Dosage: 125 MG, CYCLIC (EVERY MORNING FOR 3 WEEKS, THEN OFF FOR 1 WEEK)
     Route: 048
     Dates: start: 201903, end: 201905

REACTIONS (2)
  - Weight decreased [Unknown]
  - Neoplasm progression [Unknown]

NARRATIVE: CASE EVENT DATE: 20190517
